FAERS Safety Report 14065140 (Version 4)
Quarter: 2017Q4

REPORT INFORMATION
  Report Type: Spontaneous
  Country: JP (occurrence: JP)
  Receive Date: 20171009
  Receipt Date: 20171027
  Transmission Date: 20180321
  Serious: Yes (Hospitalization, Other)
  Sender: FDA-Public Use
  Company Number: JP-PFIZER INC-2017426590

PATIENT
  Age: 33 Year
  Sex: Female

DRUGS (3)
  1. RIZE [Suspect]
     Active Substance: CLOTIAZEPAM
     Dosage: 1 DF, AS NEEDED
  2. ADOAIR [Suspect]
     Active Substance: FLUTICASONE PROPIONATE\SALMETEROL XINAFOATE
     Dosage: UNK
     Route: 055
     Dates: end: 20170924
  3. ZITHROMAC 250MG [Suspect]
     Active Substance: AZITHROMYCIN DIHYDRATE
     Indication: PNEUMONIA MYCOPLASMAL
     Dosage: 500 MG, DAILY
     Route: 048
     Dates: start: 201709, end: 20170928

REACTIONS (15)
  - Chest discomfort [Unknown]
  - Muscular weakness [Unknown]
  - Peripheral coldness [Unknown]
  - Back pain [Recovering/Resolving]
  - Tremor [Unknown]
  - Pollakiuria [Unknown]
  - Arrhythmia [Recovering/Resolving]
  - Palpitations [Unknown]
  - Asthenia [Unknown]
  - Hyperhidrosis [Unknown]
  - Rhabdomyolysis [Unknown]
  - Malaise [Not Recovered/Not Resolved]
  - Autonomic neuropathy [Unknown]
  - Dizziness [Unknown]
  - Cold sweat [Not Recovered/Not Resolved]

NARRATIVE: CASE EVENT DATE: 20170920
